FAERS Safety Report 8782488 (Version 1)
Quarter: 2012Q4

REPORT INFORMATION
  Report Type: 
  Country: US (occurrence: US)
  Receive Date: 20120913
  Receipt Date: 20120913
  Transmission Date: 20130627
  Serious: No
  Sender: FDA-Public Use
  Company Number: US-VERTEX PHARMACEUTICAL INC.-2012-019845

PATIENT
  Age: 22 Year
  Sex: Male
  Weight: 90.7 kg

DRUGS (3)
  1. INCIVEK [Suspect]
     Indication: HEPATITIS C
     Dosage: 750 mg, tid
     Route: 048
     Dates: start: 20120727
  2. RIBASPHERE [Concomitant]
     Indication: HEPATITIS C
     Dosage: 600 mg, bid
     Dates: start: 20120727
  3. PEGASYS [Concomitant]
     Indication: HEPATITIS C
     Dosage: 180 ?g/kg, UNK
     Dates: start: 20120727

REACTIONS (2)
  - Drug dose omission [Recovered/Resolved]
  - Oropharyngeal pain [Recovered/Resolved]
